FAERS Safety Report 8568968-X (Version None)
Quarter: 2012Q3

REPORT INFORMATION
  Report Type: 
  Country: None (occurrence: None)
  Receive Date: 20120803
  Receipt Date: 20120214
  Transmission Date: 20120928
  Serious: No
  Sender: FDA-Public Use
  Company Number: US-ABBOTT-12P-163-0904345-00

PATIENT
  Sex: Male
  Weight: 96.248 kg

DRUGS (4)
  1. UNKNOWN MEDICATIONS [Concomitant]
     Indication: CARDIAC DISORDER
  2. NIASPAN [Suspect]
     Indication: BLOOD CHOLESTEROL ABNORMAL
     Dosage: EVERY AM
     Route: 048
     Dates: start: 20111114
  3. ASPIRIN [Concomitant]
     Indication: PRODUCT USED FOR UNKNOWN INDICATION
     Dosage: PRIOR TO DOSE OF NIASPAN (COATED)
  4. CRESTOR [Concomitant]
     Indication: PRODUCT USED FOR UNKNOWN INDICATION

REACTIONS (1)
  - FLUSHING [None]
